FAERS Safety Report 25452285 (Version 1)
Quarter: 2025Q2

REPORT INFORMATION
  Report Type: Spontaneous
  Country: CN (occurrence: CN)
  Receive Date: 20250618
  Receipt Date: 20250618
  Transmission Date: 20250717
  Serious: Yes (Life-Threatening, Hospitalization, Other)
  Sender: BRACCO
  Company Number: CN-BRACCO-2025CN03818

PATIENT
  Age: 72 Year
  Sex: Female

DRUGS (1)
  1. IOMERON [Suspect]
     Active Substance: IOMEPROL
     Indication: Computerised tomogram
     Route: 041
     Dates: start: 20250610, end: 20250610

REACTIONS (7)
  - Loss of consciousness [Recovering/Resolving]
  - Chest discomfort [Unknown]
  - Trismus [Unknown]
  - Slow response to stimuli [Unknown]
  - Unresponsive to stimuli [Unknown]
  - Tremor [Recovering/Resolving]
  - Rash [Recovering/Resolving]

NARRATIVE: CASE EVENT DATE: 20250610
